FAERS Safety Report 8172410-0 (Version None)
Quarter: 2012Q1

REPORT INFORMATION
  Report Type: 
  Country: None (occurrence: None)
  Receive Date: 20120224
  Receipt Date: 20120224
  Transmission Date: 20120608
  Serious: No
  Sender: FDA-Public Use
  Company Number: None

PATIENT
  Sex: Female

DRUGS (5)
  1. CELEXA [Concomitant]
  2. ESTRADERM [Suspect]
     Indication: MENOPAUSE
  3. CLIMARA [Suspect]
     Indication: HYSTERECTOMY
  4. ESTRING [Suspect]
  5. BUTRANS [Concomitant]

REACTIONS (3)
  - PRODUCT ADHESION ISSUE [None]
  - APPLICATION SITE VESICLES [None]
  - APPLICATION SITE IRRITATION [None]
